FAERS Safety Report 6636612-4 (Version None)
Quarter: 2010Q1

REPORT INFORMATION
  Report Type: 
  Country: None (occurrence: None)
  Receive Date: 20100316
  Receipt Date: 20100305
  Transmission Date: 20100710
  Serious: Yes (Life-Threatening)
  Sender: FDA-Public Use
  Company Number: DE-JNJFOC-20100303126

PATIENT
  Age: 65 Year
  Sex: Male

DRUGS (4)
  1. REOPRO [Suspect]
     Indication: ACUTE MYOCARDIAL INFARCTION
     Dosage: GIVEN AT 22:13- 22:14
  2. REOPRO [Suspect]
     Dosage: GIVEN AT 22:15 OVER 11 HOURS, 45 MINUTES
  3. ACETYLSALICYLIC ACID SRT [Concomitant]
  4. CLOPIDOGREL [Concomitant]

REACTIONS (4)
  - CARDIAC FAILURE [None]
  - CLOSTRIDIAL INFECTION [None]
  - PNEUMONIA [None]
  - VENTRICULAR SEPTAL DEFECT [None]
